FAERS Safety Report 6423280-X (Version None)
Quarter: 2009Q4

REPORT INFORMATION
  Report Type: 
  Country: None (occurrence: None)
  Receive Date: 20091102
  Receipt Date: 20091027
  Transmission Date: 20100525
  Serious: Yes (Hospitalization)
  Sender: FDA-Public Use
  Company Number: IT-BAYER-200937109GPV

PATIENT
  Age: 77 Year
  Sex: Male

DRUGS (3)
  1. NEXAVAR [Suspect]
     Indication: RENAL CANCER
     Route: 048
     Dates: start: 20070831, end: 20090731
  2. CHIARO (TICLOPIDINE CHLORHYDRATE) [Concomitant]
     Route: 048
     Dates: start: 20070928, end: 20090731
  3. NEBILOX [Concomitant]
     Route: 048
     Dates: start: 20070101, end: 20090731

REACTIONS (5)
  - BLOOD CREATININE INCREASED [None]
  - HYPOCHROMIC ANAEMIA [None]
  - OESOPHAGITIS [None]
  - VERTIGO [None]
  - VOMITING [None]
